FAERS Safety Report 7397621-3 (Version None)
Quarter: 2011Q2

REPORT INFORMATION
  Report Type: 
  Country: None (occurrence: None)
  Receive Date: 20110406
  Receipt Date: 20110401
  Transmission Date: 20111010
  Serious: Yes (Life-Threatening, Other)
  Sender: FDA-Public Use
  Company Number: FR-BRISTOL-MYERS SQUIBB COMPANY-15650807

PATIENT
  Age: 66 Year
  Sex: Male

DRUGS (10)
  1. APROVEL TABS 150 MG [Suspect]
     Route: 048
  2. FORADIL [Suspect]
  3. MIFLASONE [Suspect]
     Route: 055
  4. PRAVASTATIN SODIUM [Suspect]
  5. PLAVIX [Suspect]
  6. EUCREAS [Suspect]
     Dosage: EUCREAS 50MG/1000MG
  7. SPIRIVA [Suspect]
  8. DIAMOX [Suspect]
  9. MEDIATOR [Suspect]
     Indication: DIABETES MELLITUS
     Dates: start: 20000101, end: 20090101
  10. DIFFU-K [Suspect]

REACTIONS (2)
  - PULMONARY ARTERIAL HYPERTENSION [None]
  - DYSPNOEA EXERTIONAL [None]
